FAERS Safety Report 15021499 (Version 1)
Quarter: 2018Q2

REPORT INFORMATION
  Report Type: Spontaneous
  Country: US (occurrence: US)
  Receive Date: 20180524
  Receipt Date: 20180524
  Transmission Date: 20180711
  Serious: Yes (Life-Threatening, Hospitalization)
  Sender: FDA-Public Use
  Company Number: None

PATIENT
  Age: 57 Year
  Sex: Female
  Weight: 68.49 kg

DRUGS (2)
  1. PEMBROLIZUMAB. [Suspect]
     Active Substance: PEMBROLIZUMAB
  2. AZACITIDINE. [Suspect]
     Active Substance: AZACITIDINE

REACTIONS (5)
  - Respiratory failure [None]
  - Respiratory distress [None]
  - Acute pulmonary oedema [None]
  - Hypertension [None]
  - Acute respiratory failure [None]

NARRATIVE: CASE EVENT DATE: 20180523
